FAERS Safety Report 5795940-5 (Version None)
Quarter: 2008Q2

REPORT INFORMATION
  Report Type: 
  Country: None (occurrence: None)
  Receive Date: 20080626
  Receipt Date: 20080616
  Transmission Date: 20081010
  Serious: Yes (Other)
  Sender: FDA-Public Use
  Company Number: DSA_32042_2008

PATIENT
  Sex: Female
  Weight: 54.4316 kg

DRUGS (2)
  1. DILTIAZEM ER 180 MG (NOT SPECIFIED) [Suspect]
     Indication: DRUG USE FOR UNKNOWN INDICATION
     Dosage: 180 MG
     Dates: start: 20080610
  2. DILTIA 120 MG (NOT SPECIFIED) [Suspect]
     Indication: DRUG USE FOR UNKNOWN INDICATION
     Dosage: 120 MG
     Dates: start: 20080601

REACTIONS (1)
  - BLOOD PRESSURE SYSTOLIC INCREASED [None]
